FAERS Safety Report 19613101 (Version 2)
Quarter: 2021Q4

REPORT INFORMATION
  Report Type: Spontaneous
  Country: US (occurrence: US)
  Receive Date: 20210727
  Receipt Date: 20211013
  Transmission Date: 20220303
  Serious: No
  Sender: FDA-Public Use
  Company Number: US-BLUEPRINT MEDICINES CORPORATION-SP-US-2021-001084

PATIENT
  Age: 32 Year
  Sex: Male

DRUGS (2)
  1. AYVAKIT [Suspect]
     Active Substance: AVAPRITINIB
     Indication: Gastrointestinal stromal tumour
     Route: 048
     Dates: start: 20210702
  2. AYVAKIT [Suspect]
     Active Substance: AVAPRITINIB
     Route: 048
     Dates: start: 20210702

REACTIONS (1)
  - Fatigue [Unknown]
